FAERS Safety Report 12197686 (Version 2)
Quarter: 2016Q2

REPORT INFORMATION
  Report Type: Report from Study
  Country: MX (occurrence: MX)
  Receive Date: 20160322
  Receipt Date: 20160405
  Transmission Date: 20160815
  Serious: Yes (Death, Disabling)
  Sender: FDA-Public Use
  Company Number: MX-ORION CORPORATION ORION PHARMA-ENTC2016-0133

PATIENT
  Sex: Female

DRUGS (1)
  1. STALEVO [Suspect]
     Active Substance: CARBIDOPA\ENTACAPONE\LEVODOPA
     Indication: CEREBRAL INFARCTION
     Dosage: STRENGTH: 50/12.5/200 MG
     Route: 065

REACTIONS (3)
  - Off label use [Unknown]
  - Aphasia [Not Recovered/Not Resolved]
  - Death [Fatal]
